FAERS Safety Report 8102979-3 (Version None)
Quarter: 2012Q1

REPORT INFORMATION
  Report Type: 
  Country: None (occurrence: None)
  Receive Date: 20120201
  Receipt Date: 20120126
  Transmission Date: 20120608
  Serious: Yes (Death, Hospitalization)
  Sender: FDA-Public Use
  Company Number: JP-ASTELLAS-2011JP009649

PATIENT
  Sex: Male

DRUGS (12)
  1. RHEUMATREX [Concomitant]
     Dosage: 2 MG, BID
     Route: 048
     Dates: start: 20051101, end: 20111109
  2. PROGRAF [Suspect]
     Indication: RHEUMATOID ARTHRITIS
     Dosage: 1 MG, UID/QD
     Route: 048
     Dates: start: 20060424, end: 20111109
  3. RHEUMATREX [Concomitant]
     Indication: RHEUMATOID ARTHRITIS
     Dosage: 3 MG, BID
     Route: 048
     Dates: start: 20040412
  4. ALLOPURINOL [Concomitant]
     Indication: GOUT
     Dosage: 100 MG, UID/QD
     Route: 048
     Dates: start: 20040412, end: 20111109
  5. REBAMIPIDE [Concomitant]
     Dosage: 200 MG, UNKNOWN/D
     Route: 048
  6. RECALBON [Concomitant]
     Indication: OSTEOPOROSIS
     Dosage: 50 MG, UID/QD
     Route: 048
     Dates: start: 20111012, end: 20111109
  7. LANSOPRAZOLE [Concomitant]
     Indication: GASTROOESOPHAGEAL REFLUX DISEASE
     Dosage: 15 MG, UID/QD
     Route: 048
     Dates: start: 20100908, end: 20111109
  8. MELOXICAM [Concomitant]
     Dosage: 10 MG, UNKNOWN/D
     Route: 048
  9. AZULFIDINE [Concomitant]
     Indication: RHEUMATOID ARTHRITIS
     Dosage: 500 MG, UID/QD
     Route: 048
     Dates: start: 20040412
  10. AZULFIDINE [Concomitant]
     Dosage: 250 MG, UID/QD
     Route: 048
     Dates: start: 20070820, end: 20111109
  11. PREDNISOLONE [Concomitant]
     Dosage: 4.5 MG, UNKNOWN/D
     Route: 048
  12. DIOVAN [Concomitant]
     Indication: HYPERTENSION
     Dosage: 160 MG, UID/QD
     Route: 048
     Dates: start: 20060904, end: 20111109

REACTIONS (2)
  - CEREBRAL INFARCTION [None]
  - PNEUMONIA [None]
